FAERS Safety Report 6575972-X (Version None)
Quarter: 2010Q1

REPORT INFORMATION
  Report Type: 
  Country: None (occurrence: None)
  Receive Date: 20100209
  Receipt Date: 20100202
  Transmission Date: 20100710
  Serious: Yes (Death, Other)
  Sender: FDA-Public Use
  Company Number: US-WYE-H13352310

PATIENT
  Sex: Male
  Weight: 59.2 kg

DRUGS (7)
  1. RAPAMUNE [Suspect]
     Route: 048
     Dates: start: 20090914
  2. ASCORBIC ACID/ERGOCALCIFEROL/FOLIC ACID/NICOTINAMIDE/PANTHENOL/RETINOL [Concomitant]
  3. LOMOTIL [Concomitant]
  4. PREDNISONE [Concomitant]
  5. MYFORTIC [Concomitant]
  6. THYROGLOBULIN [Concomitant]
     Indication: PROPHYLAXIS AGAINST TRANSPLANT REJECTION
     Dosage: DOSE AND FREQUENCY NOT SPECIFIED
     Route: 065
     Dates: start: 20091217
  7. BACTRIM [Concomitant]

REACTIONS (3)
  - CARDIAC ARREST [None]
  - PANCREAS TRANSPLANT REJECTION [None]
  - RESPIRATORY DISTRESS [None]
